FAERS Safety Report 5132185-6 (Version None)
Quarter: 2006Q4

REPORT INFORMATION
  Report Type: 
  Country: None (occurrence: None)
  Receive Date: 20061017
  Receipt Date: 20061010
  Transmission Date: 20070319
  Serious: Yes (Other)
  Sender: FDA-Public Use
  Company Number: S06-USA-03509-02

PATIENT
  Age: 29 Year
  Sex: Female
  Weight: 61.2356 kg

DRUGS (5)
  1. LEXAPRO [Suspect]
     Indication: DEPRESSION
     Dosage: 20 MG QD PO
     Route: 048
     Dates: start: 20030818, end: 20031107
  2. LEXAPRO [Suspect]
     Indication: DEPRESSION
     Dosage: 20 MG QD PO
     Route: 048
     Dates: start: 20031205, end: 20040105
  3. MS CONTIN [Suspect]
     Indication: BACK PAIN
     Dosage: 15 MG BID PO
     Route: 048
     Dates: start: 20030818, end: 20030905
  4. ZANAFLEX [Concomitant]
  5. DURAGESIC-100 [Concomitant]

REACTIONS (14)
  - BONE PAIN [None]
  - BRONCHITIS ACUTE [None]
  - CARBON DIOXIDE DECREASED [None]
  - CONVULSION [None]
  - DRUG LEVEL ABOVE THERAPEUTIC [None]
  - EAR PAIN [None]
  - HEADACHE [None]
  - LASEGUE'S TEST POSITIVE [None]
  - LUMBAR SPINAL STENOSIS [None]
  - MOOD SWINGS [None]
  - NAUSEA [None]
  - PHARYNGITIS [None]
  - SPINAL COLUMN STENOSIS [None]
  - VOMITING [None]
